FAERS Safety Report 6416982-2 (Version None)
Quarter: 2009Q4

REPORT INFORMATION
  Report Type: 
  Country: None (occurrence: None)
  Receive Date: 20091027
  Receipt Date: 20090624
  Transmission Date: 20100525
  Serious: No
  Sender: FDA-Public Use
  Company Number: US-ALLERGAN-0911227US

PATIENT
  Age: 78 Year
  Sex: Female

DRUGS (2)
  1. ALPHAGAN P [Suspect]
     Indication: GLAUCOMA
     Dosage: UNK
     Dates: start: 20090101
  2. ALPHAGAN P [Suspect]
     Dosage: 3 TIMES PER WEEK
     Dates: end: 20090401

REACTIONS (3)
  - DYSPHONIA [None]
  - HYPERAEMIA [None]
  - VISION BLURRED [None]
